FAERS Safety Report 14693992 (Version 3)
Quarter: 2018Q2

REPORT INFORMATION
  Report Type: Spontaneous
  Country: US (occurrence: US)
  Receive Date: 20180329
  Receipt Date: 20180531
  Transmission Date: 20180711
  Serious: No
  Sender: FDA-Public Use
  Company Number: US-PFIZER INC-2018129633

PATIENT
  Age: 44 Year
  Sex: Female
  Weight: 63 kg

DRUGS (3)
  1. POTASSIUM [Concomitant]
     Active Substance: POTASSIUM
     Dosage: UNK (PILLS)
  2. POTASSIUM [Concomitant]
     Active Substance: POTASSIUM
     Indication: MINERAL SUPPLEMENTATION
     Dosage: UNK
     Route: 042
  3. XELJANZ [Suspect]
     Active Substance: TOFACITINIB CITRATE
     Dosage: 5 MG, 2X/DAY

REACTIONS (4)
  - Rheumatoid nodule [Unknown]
  - Condition aggravated [Not Recovered/Not Resolved]
  - Pain in extremity [Unknown]
  - Blood potassium decreased [Not Recovered/Not Resolved]
